FAERS Safety Report 8699087 (Version 2)
Quarter: 2015Q2

REPORT INFORMATION
  Report Type: Spontaneous
  Country: US (occurrence: US)
  Receive Date: 20120802
  Receipt Date: 20150410
  Transmission Date: 20150821
  Serious: Yes (Other)
  Sender: FDA-Public Use
  Company Number: US-ASTRAZENECA-2010SE13573

PATIENT
  Age: 81 Year
  Sex: Female
  Weight: 36.8 kg

DRUGS (3)
  1. NEXIUM [Suspect]
     Active Substance: ESOMEPRAZOLE MAGNESIUM
     Indication: GASTROOESOPHAGEAL REFLUX DISEASE
     Route: 048
     Dates: end: 201501
  2. NEXIUM [Suspect]
     Active Substance: ESOMEPRAZOLE MAGNESIUM
     Indication: GASTROOESOPHAGEAL REFLUX DISEASE
     Dosage: 40 MG EVERY OTHER
     Route: 048
     Dates: start: 201501
  3. NEXIUM [Suspect]
     Active Substance: ESOMEPRAZOLE MAGNESIUM
     Indication: GASTROOESOPHAGEAL REFLUX DISEASE
     Route: 048
     Dates: start: 2015

REACTIONS (11)
  - Gastrooesophageal reflux disease [Unknown]
  - Spinal pain [Unknown]
  - Dysgeusia [Not Recovered/Not Resolved]
  - Intentional product misuse [Unknown]
  - Bronchitis [Unknown]
  - Intentional product misuse [Recovered/Resolved]
  - Pancreatitis [Unknown]
  - Hand fracture [Unknown]
  - Weight decreased [Recovered/Resolved]
  - Gastrointestinal disorder [Not Recovered/Not Resolved]
  - Aphonia [Unknown]

NARRATIVE: CASE EVENT DATE: 2014
